FAERS Safety Report 6895695-7 (Version None)
Quarter: 2010Q3

REPORT INFORMATION
  Report Type: 
  Country: None (occurrence: None)
  Receive Date: 20100730
  Receipt Date: 20100730
  Transmission Date: 20110219
  Serious: Yes (Life-Threatening, Hospitalization, Disabling, Congenital Anomaly, Other)
  Sender: FDA-Public Use
  Company Number: None

PATIENT
  Sex: Male
  Weight: 127.0072 kg

DRUGS (3)
  1. ACTOS [Suspect]
     Indication: CARDIAC DISORDER
     Dosage: 30 MG 1 A DAY PO
     Route: 048
     Dates: start: 20040201, end: 20070829
  2. ACTOS [Suspect]
     Indication: DYSPNOEA
     Dosage: 30 MG 1 A DAY PO
     Route: 048
     Dates: start: 20040201, end: 20070829
  3. ACTOS [Suspect]
     Indication: SWELLING
     Dosage: 30 MG 1 A DAY PO
     Route: 048
     Dates: start: 20040201, end: 20070829

REACTIONS (5)
  - CARDIAC DISORDER [None]
  - DYSPNOEA [None]
  - EYE DISORDER [None]
  - OEDEMA PERIPHERAL [None]
  - WEIGHT INCREASED [None]
